FAERS Safety Report 6079246-5 (Version None)
Quarter: 2009Q1

REPORT INFORMATION
  Report Type: 
  Country: None (occurrence: None)
  Receive Date: 20090216
  Receipt Date: 20090211
  Transmission Date: 20090719
  Serious: Yes (Life-Threatening, Hospitalization, Other)
  Sender: FDA-Public Use
  Company Number: PHHY2009US04308

PATIENT
  Sex: Female

DRUGS (3)
  1. LIORESAL [Suspect]
     Indication: MUSCLE SPASTICITY
     Dosage: 250 UG, UNK
     Route: 037
  2. LIORESAL [Suspect]
     Dosage: 50
     Route: 037
  3. BACLOFEN [Suspect]
     Route: 048

REACTIONS (11)
  - ABNORMAL BEHAVIOUR [None]
  - ANXIETY [None]
  - COMA [None]
  - DRUG INEFFECTIVE [None]
  - INTRACRANIAL HYPOTENSION [None]
  - MUSCLE RIGIDITY [None]
  - MUSCLE SPASTICITY [None]
  - PANIC DISORDER [None]
  - PRURITUS [None]
  - SURGERY [None]
  - WITHDRAWAL SYNDROME [None]
